FAERS Safety Report 13678290 (Version 7)
Quarter: 2018Q2

REPORT INFORMATION
  Report Type: Report from Study
  Country: US (occurrence: US)
  Receive Date: 20170622
  Receipt Date: 20180611
  Transmission Date: 20180711
  Serious: Yes (Life-Threatening, Hospitalization, Other)
  Sender: FDA-Public Use
  Company Number: US-TESARO, INC-US-2017TSO00701

PATIENT

DRUGS (7)
  1. ZEJULA [Suspect]
     Active Substance: NIRAPARIB
     Dosage: 100 MG, QD
     Route: 048
  2. ZEJULA [Suspect]
     Active Substance: NIRAPARIB
     Dosage: 100 MG, QD
     Route: 048
  3. ZEJULA [Suspect]
     Active Substance: NIRAPARIB
     Dosage: 100 MG, QD
     Route: 048
     Dates: start: 20170714
  4. ZEJULA [Suspect]
     Active Substance: NIRAPARIB
     Dosage: 100 MG, QD
     Route: 048
  5. ZEJULA [Suspect]
     Active Substance: NIRAPARIB
     Indication: OVARIAN CANCER
     Dosage: 300 MG, QD
     Route: 048
     Dates: start: 20170522, end: 20170531
  6. ZEJULA [Suspect]
     Active Substance: NIRAPARIB
     Dosage: 100 MG, QD
     Route: 048
     Dates: start: 20170601, end: 20170607
  7. ZEJULA [Suspect]
     Active Substance: NIRAPARIB
     Dosage: 200 MG, QD
     Route: 048
     Dates: start: 20170608

REACTIONS (19)
  - Hypotension [Unknown]
  - Constipation [Unknown]
  - Blood pressure fluctuation [Not Recovered/Not Resolved]
  - Presyncope [Recovered/Resolved]
  - Red blood cell count decreased [Unknown]
  - Hypertension [Not Recovered/Not Resolved]
  - Platelet count decreased [Unknown]
  - Anxiety [Unknown]
  - Haematocrit decreased [Unknown]
  - Palpitations [Not Recovered/Not Resolved]
  - Haemoglobin decreased [Unknown]
  - Dysgeusia [Not Recovered/Not Resolved]
  - Cardiac disorder [Unknown]
  - Syncope [Unknown]
  - Sleep apnoea syndrome [Unknown]
  - Carotid artery insufficiency [Unknown]
  - Blood count abnormal [Not Recovered/Not Resolved]
  - Blood potassium increased [Unknown]
  - Dry mouth [Not Recovered/Not Resolved]

NARRATIVE: CASE EVENT DATE: 20170529
